FAERS Safety Report 6982693-8 (Version None)
Quarter: 2010Q3

REPORT INFORMATION
  Report Type: 
  Country: None (occurrence: None)
  Receive Date: 20100914
  Receipt Date: 20100403
  Transmission Date: 20110219
  Serious: No
  Sender: FDA-Public Use
  Company Number: US-PFIZER INC-2010042965

PATIENT
  Sex: Female
  Weight: 109 kg

DRUGS (1)
  1. LYRICA [Suspect]
     Indication: THORACIC OUTLET SYNDROME
     Dosage: 75 MG, 2X/DAY
     Route: 048
     Dates: start: 20091001

REACTIONS (1)
  - WEIGHT INCREASED [None]
